FAERS Safety Report 14255039 (Version 2)
Quarter: 2018Q2

REPORT INFORMATION
  Report Type: Report from Study
  Country: AU (occurrence: AU)
  Receive Date: 20171206
  Receipt Date: 20180406
  Transmission Date: 20180711
  Serious: Yes (Death, Hospitalization)
  Sender: FDA-Public Use
  Company Number: AU-ROCHE-2005784

PATIENT
  Age: 71 Year
  Sex: Female

DRUGS (20)
  1. HYDROCORTISONE CREME [Concomitant]
     Indication: ACNE
     Dosage: DOSE: 1 OTHER
     Route: 061
     Dates: start: 20170721
  2. PANADEINE FORTE [Concomitant]
     Active Substance: ACETAMINOPHEN\CODEINE PHOSPHATE
     Indication: DIARRHOEA
     Route: 065
     Dates: start: 20170817, end: 20170824
  3. OSMOLAX (LACTULOSE) [Concomitant]
     Indication: CONSTIPATION
     Route: 065
     Dates: start: 20170825
  4. ELEUPHRAT [Concomitant]
     Active Substance: BETAMETHASONE DIPROPIONATE
     Indication: DERMATITIS ACNEIFORM
  5. MAXOLON [Concomitant]
     Active Substance: METOCLOPRAMIDE HYDROCHLORIDE
     Indication: NAUSEA
     Route: 065
     Dates: start: 20171005
  6. OMEPRAZOLE. [Concomitant]
     Active Substance: OMEPRAZOLE
     Indication: PROPHYLAXIS
     Route: 065
     Dates: start: 20170831
  7. IBUPROFEN. [Concomitant]
     Active Substance: IBUPROFEN
     Indication: BACK PAIN
     Route: 065
     Dates: start: 20170609
  8. DULCOLAX (BISACODYL) [Concomitant]
     Active Substance: BISACODYL
     Indication: CONSTIPATION
     Route: 065
     Dates: start: 201702
  9. CLINDATECH [Concomitant]
     Indication: DERMATITIS ACNEIFORM
  10. PREDNISONE. [Concomitant]
     Active Substance: PREDNISONE
     Indication: RADIATION PNEUMONITIS
     Route: 048
     Dates: start: 20170831
  11. ATEZOLIZUMAB. [Suspect]
     Active Substance: ATEZOLIZUMAB
     Indication: MALIGNANT MELANOMA
     Dosage: DATE OF MOST RECENT DOSE OF ATEZOLIZUMAB: 17/AUG/2017 AT 11.35?DAYS 1 AND 15 OF EACH 28-DAY CYCLE
     Route: 042
     Dates: start: 20170706
  12. CLINDATECH [Concomitant]
     Indication: ACNE
     Route: 061
     Dates: start: 20170725
  13. PARACETAMOL [Concomitant]
     Active Substance: ACETAMINOPHEN
     Indication: BACK PAIN
     Route: 065
     Dates: start: 20170609
  14. COBIMETINIB. [Suspect]
     Active Substance: COBIMETINIB
     Indication: MALIGNANT MELANOMA
     Dosage: DOSE OF LAST COBIMETINIB ADMINISTERED PRIOR TO SAE ONSET: 40 MG?DATE OF MOST RECENT DOSE OF COBIMETI
     Route: 048
     Dates: start: 20170706
  15. ELEUPHRAT [Concomitant]
     Active Substance: BETAMETHASONE DIPROPIONATE
     Indication: PRURITUS
     Dosage: DOSE: 1 OTHER
     Route: 061
     Dates: start: 20170830
  16. ONDANSETRON [Concomitant]
     Active Substance: ONDANSETRON
     Indication: NAUSEA
     Route: 065
     Dates: start: 20171009, end: 20171017
  17. HYDROCORTISONE CREME [Concomitant]
     Indication: DERMATITIS ACNEIFORM
  18. MENTHOL AQUEOUS CREAM [Concomitant]
     Indication: PRURITUS
     Route: 065
     Dates: start: 20170705
  19. MENTHOL AQUEOUS CREAM [Concomitant]
     Indication: PRURITUS
  20. MENTHOL AQUEOUS CREAM [Concomitant]
     Indication: DERMATITIS ACNEIFORM

REACTIONS (1)
  - Cancer pain [Not Recovered/Not Resolved]

NARRATIVE: CASE EVENT DATE: 20170918
